FAERS Safety Report 7606749-1 (Version None)
Quarter: 2011Q3

REPORT INFORMATION
  Report Type: 
  Country: None (occurrence: None)
  Receive Date: 20110713
  Receipt Date: 20110706
  Transmission Date: 20111222
  Serious: Yes (Other)
  Sender: FDA-Public Use
  Company Number: CN-ROCHE-787671

PATIENT
  Sex: Female

DRUGS (2)
  1. UNSPECIFIED DRUG [Concomitant]
     Indication: BREAST CANCER
     Dosage: DOMESTIC MANUFACTURED TRASTUZUMAB, TRADE NAME UNKNOWN.
  2. HERCEPTIN [Suspect]
     Indication: BREAST CANCER
     Route: 065

REACTIONS (1)
  - METASTASES TO CENTRAL NERVOUS SYSTEM [None]
